FAERS Safety Report 7960469-2 (Version None)
Quarter: 2011Q4

REPORT INFORMATION
  Report Type: 
  Country: None (occurrence: None)
  Receive Date: 20111206
  Receipt Date: 20111118
  Transmission Date: 20120403
  Serious: Yes (Other)
  Sender: FDA-Public Use
  Company Number: PHHY2011IN96929

PATIENT
  Age: 40 Year
  Sex: Male

DRUGS (1)
  1. DICLOFENAC [Suspect]
     Dosage: 8 DF, DAILY

REACTIONS (6)
  - VOMITING [None]
  - INCORRECT DOSE ADMINISTERED [None]
  - OBSTRUCTION GASTRIC [None]
  - DUODENAL STENOSIS [None]
  - ABDOMINAL PAIN [None]
  - WEIGHT DECREASED [None]
